FAERS Safety Report 8953373 (Version 3)
Quarter: 2013Q1

REPORT INFORMATION
  Report Type: Report from Study
  Country: US (occurrence: US)
  Receive Date: 20121206
  Receipt Date: 20130118
  Transmission Date: 20140127
  Serious: Yes (Hospitalization)
  Sender: FDA-Public Use
  Company Number: US-JNJFOC-20121200604

PATIENT
  Age: 55 Year
  Sex: Male
  Weight: 86.64 kg

DRUGS (1)
  1. INFLIXIMAB, RECOMBINANT [Suspect]
     Indication: PSORIASIS
     Route: 042
     Dates: start: 2003

REACTIONS (2)
  - Ankle fracture [Recovered/Resolved]
  - Fall [Recovered/Resolved]
